FAERS Safety Report 11024604 (Version 1)
Quarter: 2015Q2

REPORT INFORMATION
  Report Type: Spontaneous
  Country: US (occurrence: None)
  Receive Date: 20150413
  Receipt Date: 20150413
  Transmission Date: 20150821
  Serious: Yes (Hospitalization)
  Sender: FDA-Public Use
  Company Number: None

PATIENT
  Age: 77 Year
  Sex: Male
  Weight: 132 kg

DRUGS (16)
  1. BACITRACIN. [Concomitant]
     Active Substance: BACITRACIN
  2. FUROSEMIDE. [Concomitant]
     Active Substance: FUROSEMIDE
  3. METOLAZONE. [Concomitant]
     Active Substance: METOLAZONE
  4. TABLET CUTTER [Concomitant]
  5. CHOLECALCIFEROL [Concomitant]
     Active Substance: CHOLECALCIFEROL
  6. CLINDAMYCIN HCL [Concomitant]
     Active Substance: CLINDAMYCIN HYDROCHLORIDE
  7. TELFA PAD NON-ADHESIVE [Concomitant]
  8. CLINDAMYCIN [Suspect]
     Active Substance: CLINDAMYCIN\CLINDAMYCIN PHOSPHATE
     Indication: CELLULITIS
     Route: 048
     Dates: start: 20141020, end: 20141027
  9. ALBUTEROL. [Concomitant]
     Active Substance: ALBUTEROL
  10. LEVOFLOXACIN. [Concomitant]
     Active Substance: LEVOFLOXACIN
  11. LISINOPRIL. [Concomitant]
     Active Substance: LISINOPRIL
  12. MULTIVITAMINS/MINERALS [Concomitant]
  13. BUDESONIDE. [Concomitant]
     Active Substance: BUDESONIDE
  14. SODIUM CHLORIDE. [Concomitant]
     Active Substance: SODIUM CHLORIDE
  15. GAUZE PAD [Concomitant]
  16. POTASSIUM CHLORIDE. [Concomitant]
     Active Substance: POTASSIUM CHLORIDE

REACTIONS (2)
  - Erythema multiforme [None]
  - Hypersensitivity [None]

NARRATIVE: CASE EVENT DATE: 20141027
